FAERS Safety Report 7527853 (Version 3)
Quarter: 2013Q1

REPORT INFORMATION
  Report Type: Spontaneous
  Country: US (occurrence: US)
  Receive Date: 20100804
  Receipt Date: 20130204
  Transmission Date: 20140127
  Serious: Yes (Death, Hospitalization, Other)
  Sender: FDA-Public Use
  Company Number: US-BAYER-201029413NA

PATIENT
  Age: 27 Year
  Sex: Female
  Weight: 79.37 kg

DRUGS (12)
  1. YAZ [Suspect]
     Indication: ACNE
     Dosage: UNK
     Dates: start: 20080528, end: 20090330
  2. ADVAIR DISKUS [Concomitant]
     Indication: HYPERVENTILATION
  3. IRON [Concomitant]
     Indication: PRODUCT USED FOR UNKNOWN INDICATION
  4. ONE-A-DAY [VIT C,B12,D2,B3,B6,RETINOL,B2,B1 MONONITR] [Concomitant]
     Indication: PRODUCT USED FOR UNKNOWN INDICATION
  5. OMEPRAZOLE [Concomitant]
     Indication: ABDOMINAL PAIN UPPER
  6. ADVAIR [Concomitant]
  7. IRON SUPPLEMENT [Concomitant]
  8. MULTIVITAMINS [Concomitant]
  9. ANTIBIOTICS [Concomitant]
  10. MUCINEX [Concomitant]
  11. PREDNISONE [Concomitant]
  12. PROVENTIL [Concomitant]

REACTIONS (18)
  - Pulmonary embolism [Fatal]
  - Deep vein thrombosis [None]
  - Metastatic neoplasm [None]
  - Gallbladder injury [Recovered/Resolved]
  - Cholecystitis chronic [Recovered/Resolved]
  - Cough [Fatal]
  - Asthenia [None]
  - Fatigue [None]
  - Dyspnoea at rest [Fatal]
  - Pain in extremity [None]
  - Gait disturbance [None]
  - Chest pain [Fatal]
  - Abdominal pain upper [Recovered/Resolved]
  - Pulseless electrical activity [Fatal]
  - Acute respiratory failure [Fatal]
  - Respiratory failure [Fatal]
  - Upper respiratory tract infection [Fatal]
  - Hyperventilation [Fatal]
